FAERS Safety Report 16450283 (Version 1)
Quarter: 2019Q3

REPORT INFORMATION
  Report Type: Spontaneous
  Country: US (occurrence: US)
  Receive Date: 20190618
  Receipt Date: 20190618
  Transmission Date: 20191004
  Serious: Yes (Hospitalization, Other)
  Sender: FDA-Public Use
  Company Number: None

PATIENT
  Age: 73 Year
  Sex: Female
  Weight: 62.1 kg

DRUGS (9)
  1. YESCARTA [Suspect]
     Active Substance: AXICABTAGENE CILOLEUCEL
     Indication: DIFFUSE LARGE B-CELL LYMPHOMA
     Dosage: ?          OTHER FREQUENCY:ONCE;?
     Route: 041
     Dates: start: 20190502, end: 20190502
  2. POTASSIUM CHLORIDE. [Concomitant]
     Active Substance: POTASSIUM CHLORIDE
     Dates: start: 20190501
  3. SERTRALINE [Concomitant]
     Active Substance: SERTRALINE HYDROCHLORIDE
     Dates: start: 20190124
  4. CIPROFLOXACIN ON+OFF [Concomitant]
     Dates: start: 20190426
  5. PANTOPRAZOLE [Concomitant]
     Active Substance: PANTOPRAZOLE
     Dates: start: 20190502
  6. ACEPTAMINOPHEN (PREMED) [Concomitant]
     Dates: start: 20190502, end: 20190502
  7. DIPHENHYDRAMINE (PREMED) [Concomitant]
     Dates: start: 20190502, end: 20190502
  8. POLYETHYLENE GLYCOL PWD PKT [Concomitant]
     Dates: start: 20190502, end: 20190507
  9. SODIUM CHLORIDE. [Concomitant]
     Active Substance: SODIUM CHLORIDE
     Dates: start: 20190426

REACTIONS (2)
  - Cytokine release syndrome [None]
  - Hypotension [None]

NARRATIVE: CASE EVENT DATE: 20190508
